FAERS Safety Report 5739030-6 (Version None)
Quarter: 2008Q2

REPORT INFORMATION
  Report Type: 
  Country: None (occurrence: None)
  Receive Date: 20080515
  Receipt Date: 20080409
  Transmission Date: 20081010
  Serious: No
  Sender: FDA-Public Use
  Company Number: US-BAYER-200819906NA

PATIENT
  Age: 36 Year
  Sex: Male

DRUGS (1)
  1. MAGNEVIST [Suspect]
     Indication: NUCLEAR MAGNETIC RESONANCE IMAGING BRAIN
     Dosage: TOTAL DAILY DOSE: 17 ML  UNIT DOSE: 100 ML
     Route: 042
     Dates: start: 20080408, end: 20080408

REACTIONS (1)
  - EYE PRURITUS [None]
